FAERS Safety Report 17871933 (Version 1)
Quarter: 2020Q2

REPORT INFORMATION
  Report Type: Spontaneous
  Country: US (occurrence: US)
  Receive Date: 20200608
  Receipt Date: 20200608
  Transmission Date: 20200714
  Serious: No
  Sender: FDA-Public Use
  Company Number: US-KRAMERLABS-2019-US-018402

PATIENT
  Sex: Male

DRUGS (2)
  1. NIZORAL A-D [Suspect]
     Active Substance: KETOCONAZOLE
     Indication: DANDRUFF
     Dosage: SHAMPOOING EVERY 3 DAYS EXCLUSIVELY WITH NIZORAL
     Route: 061
     Dates: start: 20190829
  2. UNSPECIFIED SHAMPOO [Suspect]
     Active Substance: UNSPECIFIED INGREDIENT
     Dates: start: 20190919

REACTIONS (1)
  - Therapeutic product effect decreased [Not Recovered/Not Resolved]

NARRATIVE: CASE EVENT DATE: 20190919
